FAERS Safety Report 12699902 (Version 1)
Quarter: 2016Q3

REPORT INFORMATION
  Report Type: Report from Study
  Country: US (occurrence: US)
  Receive Date: 20160830
  Receipt Date: 20160830
  Transmission Date: 20161109
  Serious: Yes (Hospitalization)
  Sender: FDA-Public Use
  Company Number: US-ABBVIE-16K-163-1685063-00

PATIENT
  Age: 45 Year
  Sex: Female

DRUGS (1)
  1. HUMIRA [Suspect]
     Active Substance: ADALIMUMAB
     Indication: RHEUMATOID ARTHRITIS
     Route: 058
     Dates: start: 20160605

REACTIONS (9)
  - Arthralgia [Unknown]
  - Back pain [Unknown]
  - Gait disturbance [Unknown]
  - Limb discomfort [Unknown]
  - Headache [Unknown]
  - Pain in extremity [Unknown]
  - Anxiety [Unknown]
  - Myasthenia gravis crisis [Unknown]
  - Chills [Unknown]

NARRATIVE: CASE EVENT DATE: 2016
